FAERS Safety Report 4451670-3 (Version None)
Quarter: 2004Q3

REPORT INFORMATION
  Report Type: 
  Country: None (occurrence: None)
  Receive Date: 20040915
  Receipt Date: 20040903
  Transmission Date: 20050211
  Serious: Yes (Disabling)
  Sender: FDA-Public Use
  Company Number: 2004230739GB

PATIENT
  Age: 69 Year
  Sex: Male
  Weight: 70 kg

DRUGS (10)
  1. ZYVOX [Suspect]
     Indication: STAPHYLOCOCCAL INFECTION
     Dosage: 600 MG, QD, ORAL
     Route: 048
     Dates: start: 20021121, end: 20040812
  2. LANSOPRAZOLE [Suspect]
     Indication: DYSPEPSIA
     Dosage: 30 MG, DAILY, ORAL
     Route: 048
  3. RAMIPRIL [Concomitant]
  4. RIFAMPICIN [Concomitant]
  5. ALFUZOSIN (ALFUZOSIN) [Concomitant]
  6. TOLTERODINE [Concomitant]
  7. FERROUS SULFATE TAB [Concomitant]
  8. INSULIN [Concomitant]
  9. SENNA (SENNA) TABLET [Concomitant]
  10. PARACETAMOL [Concomitant]

REACTIONS (2)
  - VISION BLURRED [None]
  - VISUAL ACUITY REDUCED [None]
